FAERS Safety Report 8366877-2 (Version None)
Quarter: 2012Q2

REPORT INFORMATION
  Report Type: 
  Country: None (occurrence: None)
  Receive Date: 20120517
  Receipt Date: 20111114
  Transmission Date: 20120825
  Serious: No
  Sender: FDA-Public Use
  Company Number: US-PFIZER INC-2011290991

PATIENT
  Sex: Female

DRUGS (1)
  1. INDERAL LA [Suspect]

REACTIONS (1)
  - DRUG INEFFECTIVE [None]
